FAERS Safety Report 24851705 (Version 1)
Quarter: 2025Q1

REPORT INFORMATION
  Report Type: Spontaneous
  Country: US (occurrence: US)
  Receive Date: 20250116
  Receipt Date: 20250116
  Transmission Date: 20250409
  Serious: No
  Sender: SK LIFE SCIENCE
  Company Number: US-SK LIFE SCIENCE, INC-SKPVG-2024-001684

PATIENT

DRUGS (5)
  1. XCOPRI [Suspect]
     Active Substance: CENOBAMATE
     Indication: Seizure
     Route: 048
     Dates: start: 2023
  2. XCOPRI [Suspect]
     Active Substance: CENOBAMATE
     Indication: Epilepsy
     Dosage: 250 MILLIGRAM, ONCE DAILY
     Route: 048
  3. ONFI [Suspect]
     Active Substance: CLOBAZAM
     Indication: Seizure
     Route: 065
  4. ARIPIPRAZOLE [Suspect]
     Active Substance: ARIPIPRAZOLE
     Indication: Psychotic disorder
     Route: 065
     Dates: end: 202406
  5. ARIPIPRAZOLE [Suspect]
     Active Substance: ARIPIPRAZOLE
     Indication: Suicidal ideation

REACTIONS (7)
  - Seizure [Recovered/Resolved]
  - Seizure [Recovered/Resolved]
  - Drug intolerance [Not Recovered/Not Resolved]
  - Balance disorder [Not Recovered/Not Resolved]
  - Speech disorder [Not Recovered/Not Resolved]
  - Dizziness [Not Recovered/Not Resolved]
  - Aphasia [Not Recovered/Not Resolved]

NARRATIVE: CASE EVENT DATE: 20240601
